FAERS Safety Report 5060463-8 (Version None)
Quarter: 2006Q3

REPORT INFORMATION
  Report Type: 
  Country: None (occurrence: None)
  Receive Date: 20060721
  Receipt Date: 20060721
  Transmission Date: 20061208
  Serious: Yes (Hospitalization)
  Sender: FDA-Public Use
  Company Number: None

PATIENT
  Sex: Male
  Weight: 58.0604 kg

DRUGS (4)
  1. TAXOL [Suspect]
     Indication: NON-SMALL CELL LUNG CANCER
     Dosage: 172.0 MG IV WEEKLY X3
     Route: 042
     Dates: start: 20060609
  2. TAXOL [Suspect]
     Indication: NON-SMALL CELL LUNG CANCER
     Dosage: 172.0 MG IV WEEKLY X3
     Route: 042
     Dates: start: 20060616
  3. TAXOL [Suspect]
     Indication: NON-SMALL CELL LUNG CANCER
     Dosage: 172.0 MG IV WEEKLY X3
     Route: 042
     Dates: start: 20060623
  4. CARBOPLATIN [Suspect]
     Dosage: 466.0 MG EVERY 3 WEEKS
     Dates: start: 20060609

REACTIONS (10)
  - BACTERIA SPUTUM IDENTIFIED [None]
  - DRUG TOXICITY [None]
  - DYSPNOEA [None]
  - FATIGUE [None]
  - MORAXELLA INFECTION [None]
  - OEDEMA PERIPHERAL [None]
  - OXYGEN SATURATION DECREASED [None]
  - PNEUMONIA [None]
  - PNEUMONIA PRIMARY ATYPICAL [None]
  - PULMONARY TOXICITY [None]
